FAERS Safety Report 19600905 (Version 1)
Quarter: 2021Q3

REPORT INFORMATION
  Report Type: Other
  Country: US (occurrence: US)
  Receive Date: 20210722
  Receipt Date: 20210722
  Transmission Date: 20211014
  Serious: Yes (Other)
  Sender: FDA-Public Use
  Company Number: US-APOTEX-2021AP021984

PATIENT
  Age: 54 Year
  Sex: Female

DRUGS (2)
  1. ZANTAC [Suspect]
     Active Substance: RANITIDINE HYDROCHLORIDE
     Indication: GASTRIC BYPASS
     Dosage: DAILY
     Route: 065
     Dates: start: 199401, end: 201701
  2. RANITIDINE TABLETS [Suspect]
     Active Substance: RANITIDINE HYDROCHLORIDE
     Indication: GASTRIC BYPASS
     Dosage: DAILY
     Route: 065
     Dates: start: 201101, end: 201902

REACTIONS (2)
  - Breast cancer [Unknown]
  - Vulval cancer [Unknown]

NARRATIVE: CASE EVENT DATE: 20101012
